FAERS Safety Report 7347143-0 (Version None)
Quarter: 2011Q1

REPORT INFORMATION
  Report Type: 
  Country: None (occurrence: None)
  Receive Date: 20110311
  Receipt Date: 20110302
  Transmission Date: 20110831
  Serious: Yes (Other)
  Sender: FDA-Public Use
  Company Number: CH-CEPHALON-2011001062

PATIENT
  Age: 26 Year
  Sex: Male

DRUGS (4)
  1. SEROQUEL [Suspect]
     Indication: DEPRESSION
  2. ABILIFY [Suspect]
     Indication: DEPRESSION
  3. MODASOMIL [Suspect]
     Indication: FATIGUE
     Route: 048
  4. VENLAFAXINE [Suspect]
     Indication: DEPRESSION

REACTIONS (2)
  - SPEECH DISORDER [None]
  - EXTRAPYRAMIDAL DISORDER [None]
